FAERS Safety Report 7238084-8 (Version None)
Quarter: 2011Q1

REPORT INFORMATION
  Report Type: 
  Country: None (occurrence: None)
  Receive Date: 20110121
  Receipt Date: 20110111
  Transmission Date: 20110831
  Serious: Yes (Hospitalization)
  Sender: FDA-Public Use
  Company Number: B0694417A

PATIENT
  Age: 62 Year
  Sex: Female

DRUGS (2)
  1. FLOLAN [Suspect]
     Route: 065
  2. LETAIRIS [Suspect]
     Route: 048
     Dates: start: 20090908

REACTIONS (1)
  - FLUID OVERLOAD [None]
